FAERS Safety Report 20473740 (Version 1)
Quarter: 2022Q1

REPORT INFORMATION
  Report Type: Spontaneous
  Country: FR (occurrence: FR)
  Receive Date: 20220215
  Receipt Date: 20220215
  Transmission Date: 20220423
  Serious: Yes (Death)
  Sender: FDA-Public Use
  Company Number: None

PATIENT
  Age: 38 Year
  Sex: Female

DRUGS (7)
  1. TRAMADOL HYDROCHLORIDE [Suspect]
     Active Substance: TRAMADOL HYDROCHLORIDE
     Indication: Pain
     Dosage: 100 MILLIGRAM
     Route: 042
     Dates: start: 20211013, end: 20211105
  2. PREDNISOLONE [Suspect]
     Active Substance: PREDNISOLONE
     Indication: Hepatitis alcoholic
     Dosage: 40 MILLIGRAM
     Route: 065
     Dates: start: 20211026, end: 20211031
  3. TERBUTALINE SULFATE [Suspect]
     Active Substance: TERBUTALINE SULFATE
     Indication: Prophylaxis against bronchospasm
     Dosage: 5 MILLIGRAM
     Route: 065
     Dates: start: 20211016, end: 20211106
  4. SPIRONOLACTONE [Suspect]
     Active Substance: SPIRONOLACTONE
     Indication: Product used for unknown indication
     Dosage: UNK
     Route: 065
     Dates: start: 20211030, end: 20211105
  5. FUROSEMIDE [Suspect]
     Active Substance: FUROSEMIDE
     Indication: Product used for unknown indication
     Dosage: UNK
     Route: 065
     Dates: start: 20211029, end: 20211105
  6. ACETYLCYSTEINE [Suspect]
     Active Substance: ACETYLCYSTEINE
     Indication: Hepatitis alcoholic
     Route: 042
     Dates: start: 20211013, end: 20211105
  7. DUPHALAC [Concomitant]
     Active Substance: LACTULOSE
     Indication: Product used for unknown indication
     Dosage: UNK
     Route: 065

REACTIONS (1)
  - Pneumonia [Fatal]

NARRATIVE: CASE EVENT DATE: 20211001
